FAERS Safety Report 13871790 (Version 1)
Quarter: 2017Q3

REPORT INFORMATION
  Report Type: Report from Study
  Country: BR (occurrence: BR)
  Receive Date: 20170816
  Receipt Date: 20170816
  Transmission Date: 20171127
  Serious: Yes (Hospitalization)
  Sender: FDA-Public Use
  Company Number: BR-UCBSA-2017026572

PATIENT
  Age: 69 Year
  Sex: Male

DRUGS (1)
  1. CERTOLIZUMAB PEGOL [Suspect]
     Active Substance: CERTOLIZUMAB PEGOL
     Indication: RHEUMATOID ARTHRITIS
     Dosage: UNK
     Dates: end: 201609

REACTIONS (5)
  - Rhinitis [Unknown]
  - Immunodeficiency [Unknown]
  - Mass [Unknown]
  - Bacterial infection [Unknown]
  - Localised infection [Unknown]

NARRATIVE: CASE EVENT DATE: 201608
